FAERS Safety Report 7753678-9 (Version None)
Quarter: 2011Q3

REPORT INFORMATION
  Report Type: 
  Country: None (occurrence: None)
  Receive Date: 20110915
  Receipt Date: 20110915
  Transmission Date: 20111222
  Serious: Yes (Hospitalization, Other)
  Sender: FDA-Public Use
  Company Number: None

PATIENT
  Age: 65 Year
  Sex: Female
  Weight: 91 kg

DRUGS (11)
  1. AMLODIPINE [Concomitant]
     Route: 048
  2. HYDROMORPHONE IV VIA PCA, [Concomitant]
  3. SLIDING SCALE INSULIN-REGULAR [Concomitant]
  4. NYSTATIN [Concomitant]
     Route: 061
  5. LOPERAMIDE [Concomitant]
     Route: 048
  6. CITALOPRAM HYDROBROMIDE [Concomitant]
     Route: 048
  7. ESTRADIOL [Concomitant]
     Route: 048
  8. LEVOFLOXACIN [Concomitant]
     Route: 042
  9. ISOVUE-128 [Suspect]
     Indication: COMPUTERISED TOMOGRAM
     Dosage: UNKNOWN
     Route: 048
     Dates: start: 20110610, end: 20110610
  10. PANTOPRAZOLE [Concomitant]
     Route: 048
  11. LORAZEPAM [Concomitant]
     Route: 048

REACTIONS (3)
  - NEPHROPATHY TOXIC [None]
  - DIALYSIS [None]
  - RENAL FAILURE ACUTE [None]
